FAERS Safety Report 9478310 (Version 1)
Quarter: 2013Q3

REPORT INFORMATION
  Report Type: Spontaneous
  Country: AU (occurrence: None)
  Receive Date: 20130821
  Receipt Date: 20130821
  Transmission Date: 20140515
  Serious: Yes (Other)
  Sender: FDA-Public Use
  Company Number: 2013AP007237

PATIENT
  Sex: Female

DRUGS (5)
  1. ALENDRONATE (ALENDRONATE SODIUM) [Suspect]
     Indication: PELVIC FRACTURE
  2. CALCITROL [Concomitant]
  3. CALCIUM CARBONATE (CALCIUM CARBONATE [Concomitant]
  4. OESTRADIOL /00045401/ (ESTRADIOL) [Concomitant]
  5. TERIPARATIDE [Suspect]
     Indication: LOW TURNOVER OSTEOPATHY

REACTIONS (3)
  - Atypical fracture [None]
  - Femur fracture [None]
  - Low turnover osteopathy [None]
